FAERS Safety Report 5868547-9 (Version None)
Quarter: 2008Q3

REPORT INFORMATION
  Report Type: 
  Country: None (occurrence: None)
  Receive Date: 20080902
  Receipt Date: 20080902
  Transmission Date: 20090109
  Serious: No
  Sender: FDA-Public Use
  Company Number: None

PATIENT

DRUGS (2)
  1. RAMIPRIL [Suspect]
     Dosage: 1 DAILY PO
     Route: 048
     Dates: start: 20080627, end: 20080829
  2. RAMIPRIL [Suspect]
     Dosage: 1 DAILY PO
     Route: 048
     Dates: start: 20080801, end: 20080829

REACTIONS (3)
  - BLOOD PRESSURE INADEQUATELY CONTROLLED [None]
  - DRUG INEFFECTIVE [None]
  - HEADACHE [None]
